FAERS Safety Report 13103547 (Version 1)
Quarter: 2017Q1

REPORT INFORMATION
  Report Type: Spontaneous
  Country: GB (occurrence: GB)
  Receive Date: 20170111
  Receipt Date: 20170111
  Transmission Date: 20170428
  Serious: Yes (Hospitalization)
  Sender: FDA-Public Use
  Company Number: GB-DEXPHARM-20170005

PATIENT
  Age: 63 Year

DRUGS (9)
  1. CETIRIZINE [Concomitant]
     Active Substance: CETIRIZINE HYDROCHLORIDE
     Dosage: TAKES REGULARLY.
  2. GAVISCON ADVANCE [Concomitant]
     Active Substance: POTASSIUM BICARBONATE\SODIUM ALGINATE
     Dosage: 4 TIMES A DAY FOR 10 DAYS. NEWLY STARTED.
     Dates: start: 20160715
  3. OMEPRAZOLE. [Suspect]
     Active Substance: OMEPRAZOLE
     Dosage: DAILY DOSE: 40 MG MILLGRAM(S) EVERY DAYS
  4. OMEPRAZOLE. [Interacting]
     Active Substance: OMEPRAZOLE
     Dosage: DAILY DOSE: 20 MG MILLGRAM(S) EVERY DAYS
     Dates: end: 20160715
  5. ALLOPURINOL. [Concomitant]
     Active Substance: ALLOPURINOL
     Dosage: AT NIGHT AFTER FOOD.
  6. MEZAVANT XL [Concomitant]
     Active Substance: MESALAMINE
     Dosage: DAILY DOSE: 2400 MG MILLGRAM(S) EVERY DAYS
  7. DOMPERIDONE [Concomitant]
     Active Substance: DOMPERIDONE
     Dosage: ONLY TAKES AS NEEDED TWICE A DAY.
  8. NAPROXEN. [Suspect]
     Active Substance: NAPROXEN
     Indication: GOUT
     Dosage: ONE TABLET TWICE DAILY FOR TWO WEEKS AND THEN AS NECESSARY
     Dates: start: 20160627
  9. TRIMETHOPRIM. [Concomitant]
     Active Substance: TRIMETHOPRIM
     Dosage: DAILY DOSE: 400 MG MILLGRAM(S) EVERY DAYS
     Dates: start: 20160615

REACTIONS (2)
  - Drug interaction [Not Recovered/Not Resolved]
  - Tubulointerstitial nephritis [Not Recovered/Not Resolved]
